FAERS Safety Report 12975486 (Version 1)
Quarter: 2016Q4

REPORT INFORMATION
  Report Type: Spontaneous
  Country: US (occurrence: US)
  Receive Date: 20161122
  Receipt Date: 20161122
  Transmission Date: 20170207
  Serious: Yes (Hospitalization)
  Sender: FDA-Public Use
  Company Number: None

PATIENT
  Age: 43 Year
  Sex: Male
  Weight: 154 kg

DRUGS (2)
  1. CEPHALEXIN. [Suspect]
     Active Substance: CEPHALEXIN
     Indication: DEVICE RELATED INFECTION
     Route: 048
     Dates: start: 20160814, end: 20160822
  2. AMOXICILLIN. [Suspect]
     Active Substance: AMOXICILLIN
     Indication: DEVICE RELATED INFECTION
     Route: 048
     Dates: start: 20160722, end: 20160802

REACTIONS (9)
  - Gastrointestinal haemorrhage [None]
  - Polyp [None]
  - Dyspnoea [None]
  - Oedema [None]
  - Anaemia [None]
  - International normalised ratio increased [None]
  - Thrombocytopenia [None]
  - Diarrhoea [None]
  - Anal incontinence [None]

NARRATIVE: CASE EVENT DATE: 20160814
